FAERS Safety Report 8389658-2 (Version None)
Quarter: 2012Q2

REPORT INFORMATION
  Report Type: 
  Country: None (occurrence: None)
  Receive Date: 20120528
  Receipt Date: 20120327
  Transmission Date: 20120825
  Serious: Yes (Hospitalization)
  Sender: FDA-Public Use
  Company Number: US-ROCHE-1053734

PATIENT
  Sex: Female

DRUGS (1)
  1. LUCENTIS [Suspect]
     Indication: PRODUCT USED FOR UNKNOWN INDICATION
     Route: 050

REACTIONS (6)
  - MUSCLE SPASMS [None]
  - VOMITING [None]
  - GASTROINTESTINAL DISORDER [None]
  - CONSTIPATION [None]
  - MALAISE [None]
  - CARDIAC FIBRILLATION [None]
